FAERS Safety Report 7141494-0 (Version None)
Quarter: 2010Q4

REPORT INFORMATION
  Report Type: 
  Country: None (occurrence: None)
  Receive Date: 20101126
  Receipt Date: 20101112
  Transmission Date: 20110411
  Serious: Yes (Death)
  Sender: FDA-Public Use
  Company Number: 1000017389

PATIENT
  Sex: Male

DRUGS (6)
  1. MEMANTINE HCL [Suspect]
     Indication: DEMENTIA
     Dosage: SEE IMAGE
     Route: 048
     Dates: start: 20100729
  2. MEMANTINE HCL [Suspect]
     Indication: DEMENTIA
     Dosage: SEE IMAGE
     Route: 048
     Dates: start: 20100903
  3. MEMANTINE HCL [Suspect]
     Indication: DEMENTIA
     Dosage: SEE IMAGE
     Route: 048
     Dates: start: 20101007
  4. MEMANTINE HCL [Suspect]
     Indication: DEMENTIA
     Dosage: SEE IMAGE
     Route: 048
     Dates: start: 20101020
  5. ACARBOSE (ACARBOSE) (ACARBOSE) [Concomitant]
  6. ARB (CANDESARTAN CILEXETIL) (CANDESARTAN CILEXETIL) [Concomitant]

REACTIONS (1)
  - LUNG INFECTION [None]
